FAERS Safety Report 13969565 (Version 3)
Quarter: 2023Q1

REPORT INFORMATION
  Report Type: Spontaneous
  Country: US (occurrence: US)
  Receive Date: 20170914
  Receipt Date: 20230206
  Transmission Date: 20230417
  Serious: No
  Sender: FDA-Public Use
  Company Number: US-PFIZER INC-2017396990

PATIENT
  Age: 55 Year
  Sex: Female

DRUGS (3)
  1. XELJANZ XR [Suspect]
     Active Substance: TOFACITINIB CITRATE
     Dosage: 11 MG, UNK
  2. XELJANZ XR [Suspect]
     Active Substance: TOFACITINIB CITRATE
     Dosage: 11 MG, ONLY ON MONDAY, WEDNESDAY AND FRIDAY
  3. XELJANZ XR [Suspect]
     Active Substance: TOFACITINIB CITRATE
     Dosage: 11 MG, 1X/DAY (EVERY DAY AFTER FOOD)
     Route: 048

REACTIONS (3)
  - Pain in extremity [Unknown]
  - Musculoskeletal stiffness [Unknown]
  - Off label use [Unknown]
